FAERS Safety Report 9846961 (Version 1)
Quarter: 2013Q4

REPORT INFORMATION
  Report Type: Spontaneous
  Country: US (occurrence: None)
  Receive Date: 20131219
  Receipt Date: 20131219
  Transmission Date: 20140711
  Serious: Yes (Other)
  Sender: FDA-Public Use
  Company Number: 163-21880-12052205

PATIENT
  Age: 64 Year
  Sex: Female
  Weight: 59 kg

DRUGS (10)
  1. REVLIMID (LENALIDOMIDE) (10 MILLIGRAM, CAPSULES) [Suspect]
     Indication: PLASMA CELL MYELOMA
     Dosage: 10 MG , 3 IN 1 WK, PO  15NOV2007-14JAN2010 THERAPY DATES
     Route: 048
     Dates: start: 20071115, end: 20100114
  2. THALOMID (THALIDOMIDE) (50 MILLIGRAM, CAPSULES) [Suspect]
     Dosage: 1) 50 MG . DAILY ON SUN, TUES, THURS AND SAT., PO
     Route: 048
  3. DEXAMETHASONE (DEXAMETHASONE) (TABLETS) [Suspect]
     Dosage: 2 ) NOT PROVIDED , PO  UNKNOWN - UNKNOWN
  4. VELCADE (BORTEZOMIB) (UNKNOWN) [Suspect]
  5. POTASSIUM CL (POTASSIUM CHLORIDE) (TABLETS)0 [Concomitant]
  6. ACYCLOVIR (ACIDLOVIR) [Concomitant]
  7. METANX (METANX) [Concomitant]
  8. CALCIUM +D (OS-CAL) [Concomitant]
  9. VITAMIN E (TOCOPHEROL) [Concomitant]
  10. FISH OIL (FISH OIL) [Concomitant]

REACTIONS (3)
  - Rash [None]
  - Nerve injury [None]
  - Insomnia [None]
